FAERS Safety Report 18829006 (Version 1)
Quarter: 2021Q1

REPORT INFORMATION
  Report Type: Spontaneous
  Country: US (occurrence: US)
  Receive Date: 20210201
  Receipt Date: 20210201
  Transmission Date: 20210419
  Serious: No
  Sender: FDA-Public Use
  Company Number: US-ABBVIE-20K-163-3555564-00

PATIENT
  Age: 62 Year
  Sex: Female

DRUGS (7)
  1. LEVOTHYROXINE (NON?ABBVIE) [Concomitant]
     Indication: PRODUCT USED FOR UNKNOWN INDICATION
  2. LEXAPRO (NON?ABBVIE) [Concomitant]
     Indication: POST-TRAUMATIC STRESS DISORDER
  3. METHOTREXATE (NON?ABBVIE) [Concomitant]
     Active Substance: METHOTREXATE
     Indication: UVEITIS
  4. SERAQUIL (NON?ABBVIE) [Concomitant]
     Indication: POST-TRAUMATIC STRESS DISORDER
  5. HUMIRA [Suspect]
     Active Substance: ADALIMUMAB
     Indication: UVEITIS
     Route: 058
     Dates: start: 202008
  6. FOLIC ACID (NON?ABBVIE) [Concomitant]
     Indication: UVEITIS
  7. PRAZOSIN (NON?ABBVIE) [Concomitant]
     Indication: POST-TRAUMATIC STRESS DISORDER

REACTIONS (2)
  - Injection site haemorrhage [Recovered/Resolved]
  - Device issue [Unknown]

NARRATIVE: CASE EVENT DATE: 202008
